FAERS Safety Report 24444935 (Version 6)
Quarter: 2025Q2

REPORT INFORMATION
  Report Type: Report from Study
  Country: US (occurrence: US)
  Receive Date: 20241016
  Receipt Date: 20250401
  Transmission Date: 20250717
  Serious: Yes (Hospitalization)
  Sender: TAKEDA
  Company Number: US-TAKEDA-2024TUS103196

PATIENT
  Sex: Male
  Weight: 63.95 kg

DRUGS (11)
  1. TEDUGLUTIDE [Suspect]
     Active Substance: TEDUGLUTIDE
     Indication: Short-bowel syndrome
     Dosage: 3.5 MILLIGRAM, QD
  2. TEDUGLUTIDE [Suspect]
     Active Substance: TEDUGLUTIDE
     Dosage: 3.5 MILLIGRAM, QD
  3. TEDUGLUTIDE [Suspect]
     Active Substance: TEDUGLUTIDE
     Dosage: 3.5 MILLIGRAM, QD
     Dates: end: 20210921
  4. TEDUGLUTIDE [Suspect]
     Active Substance: TEDUGLUTIDE
  5. SALINE [Concomitant]
     Active Substance: SODIUM CHLORIDE
  6. IRON [Concomitant]
     Active Substance: IRON
  7. VITAMIN D3 [Concomitant]
     Active Substance: CHOLECALCIFEROL
  8. INTRALIPID [Concomitant]
     Active Substance: EGG PHOSPHOLIPIDS\GLYCERIN\SOYBEAN OIL
  9. TPN [Concomitant]
     Active Substance: AMINO ACIDS\DEXTROSE\ELECTROLYTES NOS\SOYBEAN OIL
  10. OMEPRAZOLE [Concomitant]
     Active Substance: OMEPRAZOLE
  11. ATROPINE\DIPHENOXYLATE [Concomitant]
     Active Substance: ATROPINE\DIPHENOXYLATE

REACTIONS (5)
  - Gastroenteritis viral [Unknown]
  - Nasopharyngitis [Unknown]
  - Respiratory tract infection [Unknown]
  - Upper respiratory tract infection [Unknown]
  - Product dose omission in error [Unknown]
